FAERS Safety Report 8274763-1 (Version None)
Quarter: 2012Q2

REPORT INFORMATION
  Report Type: 
  Country: None (occurrence: None)
  Receive Date: 20120411
  Receipt Date: 20120329
  Transmission Date: 20120825
  Serious: Yes (Disabling, Other)
  Sender: FDA-Public Use
  Company Number: BR-ELI_LILLY_AND_COMPANY-BR201109002782

PATIENT
  Sex: Male
  Weight: 90 kg

DRUGS (4)
  1. GINKO BILOBA [Concomitant]
     Dosage: UNK, UNKNOWN
     Route: 065
  2. CIALIS [Suspect]
     Indication: ERECTILE DYSFUNCTION
     Dosage: UNK UNK, 2/M
     Route: 065
  3. TIMOLOL MALEATE [Concomitant]
     Indication: GLAUCOMA
     Dosage: UNK, BID
     Route: 065
  4. GINSENG                            /00480901/ [Concomitant]
     Dosage: UNK, UNKNOWN

REACTIONS (4)
  - RETINAL DISORDER [None]
  - CONJUNCTIVITIS [None]
  - VISUAL ACUITY REDUCED [None]
  - WRONG TECHNIQUE IN DRUG USAGE PROCESS [None]
